FAERS Safety Report 25462268 (Version 1)
Quarter: 2025Q2

REPORT INFORMATION
  Report Type: Spontaneous
  Country: US (occurrence: None)
  Receive Date: 20250619
  Receipt Date: 20250619
  Transmission Date: 20250717
  Serious: Yes (unspecified)
  Sender: FDA-CTU
  Company Number: None

PATIENT
  Age: 35 Year
  Sex: Female
  Weight: 51.75 kg

DRUGS (3)
  1. ASCORBIC ACID [Suspect]
     Active Substance: ASCORBIC ACID
     Indication: Liver disorder
     Dates: start: 20250307
  2. Myfortic 720 mg [Concomitant]
  3. PREDNISONE [Concomitant]
     Active Substance: PREDNISONE

REACTIONS (7)
  - Infusion related reaction [None]
  - Product colour issue [None]
  - Autoimmune hepatitis [None]
  - Hepatitis [None]
  - Product formulation issue [None]
  - Product label issue [None]
  - Product with quality issue administered [None]

NARRATIVE: CASE EVENT DATE: 20250307
